FAERS Safety Report 23848337 (Version 1)
Quarter: 2024Q2

REPORT INFORMATION
  Report Type: Spontaneous
  Country: US (occurrence: US)
  Receive Date: 20240513
  Receipt Date: 20240513
  Transmission Date: 20240716
  Serious: Yes (Other)
  Sender: FDA-Public Use
  Company Number: US-BAYER-2024A069104

PATIENT
  Age: 65 Year
  Sex: Male

DRUGS (1)
  1. AFRIN ORIGINAL PUMP MIST [Suspect]
     Active Substance: OXYMETAZOLINE HYDROCHLORIDE
     Route: 045

REACTIONS (2)
  - Drug dependence [Unknown]
  - Product use issue [Unknown]
